APPROVED DRUG PRODUCT: NORETHINDRONE AND ETHINYL ESTRADIOL (10/11)
Active Ingredient: ETHINYL ESTRADIOL; NORETHINDRONE
Strength: 0.035MG,0.035MG;0.5MG,1MG
Dosage Form/Route: TABLET;ORAL-28
Application: A071044 | Product #001
Applicant: WATSON LABORATORIES INC AN INDIRECT WHOLLY OWNED SUB OF TEVA PHARMACEUTICALS USA INC
Approved: Apr 1, 1988 | RLD: No | RS: No | Type: RX